FAERS Safety Report 23622887 (Version 4)
Quarter: 2024Q1

REPORT INFORMATION
  Report Type: Spontaneous
  Country: US (occurrence: US)
  Receive Date: 20240312
  Receipt Date: 20240315
  Transmission Date: 20240410
  Serious: Yes (Other)
  Sender: FDA-Public Use
  Company Number: US-PFIZER INC-202400061011

PATIENT
  Age: 7 Year
  Sex: Female

DRUGS (2)
  1. OXBRYTA [Suspect]
     Active Substance: VOXELOTOR
     Dosage: 300MG, 2 TABLETS FOR ORAL SUSPENSION ONCE DAILY
     Route: 048
  2. OXBRYTA [Suspect]
     Active Substance: VOXELOTOR
     Dosage: 300MG, 3 TABLETS FOR ORAL SUSPENSION ONCE DAILY, ORALLY
     Route: 048

REACTIONS (2)
  - Drug ineffective [Unknown]
  - Diarrhoea [Unknown]
